FAERS Safety Report 9167070 (Version 1)
Quarter: 2013Q1

REPORT INFORMATION
  Report Type: Spontaneous
  Country: CO (occurrence: CO)
  Receive Date: 20130318
  Receipt Date: 20130318
  Transmission Date: 20140127
  Serious: Yes (Other)
  Sender: FDA-Public Use
  Company Number: CO-AMGEN-COLSP2011065330

PATIENT
  Age: 62 Year
  Sex: Female

DRUGS (10)
  1. ENBREL [Suspect]
     Indication: PSORIASIS
     Dosage: 50 MG, WEEKLY
     Route: 058
     Dates: start: 2010
  2. LOVASTATIN [Concomitant]
     Dosage: UNK
     Route: 048
  3. ENALAPRIL [Concomitant]
     Dosage: UNK
  4. METFORMIN [Concomitant]
     Indication: DIABETES MELLITUS
     Dosage: 850 MG, 3X/DAY
     Route: 048
     Dates: start: 2009
  5. LOSARTAN [Concomitant]
     Indication: HYPERTENSION
     Dosage: 50 MG, 1X/DAY
     Route: 048
     Dates: start: 2010
  6. RANITIDINE [Concomitant]
     Dosage: 150 MG, UNK
     Route: 065
     Dates: start: 201211
  7. ACETAMINOPHEN [Concomitant]
     Indication: BACK PAIN
     Dosage: 500 MG, UNK
  8. TRAMADOL [Concomitant]
     Indication: BACK PAIN
     Dosage: 10 MG, UNK
     Route: 065
     Dates: start: 20130306
  9. MYLANTA                            /00036701/ [Concomitant]
     Dosage: UNK
     Route: 065
  10. OMEPRAZOL                          /00661201/ [Concomitant]
     Dosage: UNK

REACTIONS (5)
  - Hypoacusis [Not Recovered/Not Resolved]
  - Pain in extremity [Not Recovered/Not Resolved]
  - Headache [Not Recovered/Not Resolved]
  - Dizziness [Not Recovered/Not Resolved]
  - Cough [Recovered/Resolved]
